FAERS Safety Report 20900981 (Version 1)
Quarter: 2022Q2

REPORT INFORMATION
  Report Type: Spontaneous
  Country: US (occurrence: US)
  Receive Date: 20220601
  Receipt Date: 20220601
  Transmission Date: 20220721
  Serious: No
  Sender: FDA-Public Use
  Company Number: US-ESPERION THERAPEUTICS, INC-2022USA00491

PATIENT
  Age: 44 Year
  Sex: Male

DRUGS (1)
  1. NEXLIZET [Suspect]
     Active Substance: BEMPEDOIC ACID\EZETIMIBE
     Indication: Product used for unknown indication
     Dosage: 180 MILLIGRAM, QD
     Route: 048

REACTIONS (2)
  - Gout [Recovered/Resolved]
  - Myalgia [Recovered/Resolved]

NARRATIVE: CASE EVENT DATE: 20211201
